FAERS Safety Report 10416044 (Version 3)
Quarter: 2015Q1

REPORT INFORMATION
  Report Type: Spontaneous
  Country: US (occurrence: US)
  Receive Date: 20140828
  Receipt Date: 20150219
  Transmission Date: 20150720
  Serious: Yes (Hospitalization, Other)
  Sender: FDA-Public Use
  Company Number: US-PFIZER INC-2014238504

PATIENT
  Age: 81 Year
  Sex: Male
  Weight: 68.03 kg

DRUGS (3)
  1. CARBIDOPA. [Concomitant]
     Active Substance: CARBIDOPA
     Indication: PARKINSON^S DISEASE
     Dosage: UNK
  2. AMLODIPINE [Concomitant]
     Active Substance: AMLODIPINE BESYLATE
     Indication: HYPERTENSION
     Dosage: 5 MG, DAILY
  3. SUTENT [Suspect]
     Active Substance: SUNITINIB MALATE
     Indication: RENAL CANCER
     Dosage: 50 MG, DAILY (TAKE 28 DAYS 14 DAY-NO PILL START NEXT 28 PERIOD)
     Route: 048
     Dates: start: 20140812

REACTIONS (5)
  - Headache [Not Recovered/Not Resolved]
  - Platelet count decreased [Recovered/Resolved]
  - Renal disorder [Recovered/Resolved]
  - Insomnia [Not Recovered/Not Resolved]
  - Hypogeusia [Unknown]

NARRATIVE: CASE EVENT DATE: 2014
